FAERS Safety Report 10377342 (Version 1)
Quarter: 2014Q3

REPORT INFORMATION
  Report Type: Spontaneous
  Country: US (occurrence: None)
  Receive Date: 20140811
  Receipt Date: 20140811
  Transmission Date: 20150326
  Serious: Yes (Death)
  Sender: FDA-Public Use
  Company Number: None

PATIENT
  Age: 69 Year
  Sex: Male
  Weight: 77 kg

DRUGS (8)
  1. MICAFUNGIN [Concomitant]
     Active Substance: MICAFUNGIN
  2. CLONIDINE PATCH [Concomitant]
  3. PONATINIB [Suspect]
     Active Substance: PONATINIB
     Indication: CHROMOSOME ANALYSIS ABNORMAL
     Route: 048
     Dates: start: 20140602, end: 20140623
  4. ATOVAQUONE. [Concomitant]
     Active Substance: ATOVAQUONE
  5. URSODIOL. [Concomitant]
     Active Substance: URSODIOL
  6. PONATINIB [Suspect]
     Active Substance: PONATINIB
     Route: 048
     Dates: start: 20140602, end: 20140623
  7. DEXMAETHASONE ORAL [Concomitant]
  8. MEROPENEM. [Concomitant]
     Active Substance: MEROPENEM

REACTIONS (12)
  - Venous thrombosis [None]
  - Oesophageal ulcer [None]
  - Pneumonia [None]
  - Haematemesis [None]
  - Gastric ulcer [None]
  - Ascites [None]
  - Venoocclusive liver disease [None]
  - Hypotension [None]
  - Cardiac arrest [None]
  - Disease recurrence [None]
  - Hyperbilirubinaemia [None]
  - Hepatorenal syndrome [None]

NARRATIVE: CASE EVENT DATE: 20140709
